FAERS Safety Report 9473651 (Version 2)
Quarter: 2013Q3

REPORT INFORMATION
  Report Type: Spontaneous
  Country: US (occurrence: US)
  Receive Date: 20130823
  Receipt Date: 20130823
  Transmission Date: 20140515
  Serious: Yes (Hospitalization)
  Sender: FDA-Public Use
  Company Number: US-BRISTOL-MYERS SQUIBB COMPANY-16833238

PATIENT
  Age: 59 Year
  Sex: Female
  Weight: 93.42 kg

DRUGS (13)
  1. SPRYCEL [Suspect]
     Indication: CHRONIC MYELOID LEUKAEMIA
     Route: 048
     Dates: start: 20120714
  2. VITAMIN D [Concomitant]
  3. EPIPEN [Concomitant]
  4. FERROUS GLUCONATE [Concomitant]
  5. PREVACID [Concomitant]
  6. TOPROL [Concomitant]
  7. ZANTAC [Concomitant]
  8. ZOCOR [Concomitant]
  9. VERAPAMIL [Concomitant]
  10. COZAAR [Concomitant]
  11. NORVASC [Concomitant]
  12. VITAMIN D3 [Concomitant]
     Dosage: 1DF=1000 UNITS
  13. FLECAINIDE [Concomitant]

REACTIONS (3)
  - Atrial fibrillation [Unknown]
  - Abdominal pain [Unknown]
  - Abdominal distension [Recovered/Resolved]
